FAERS Safety Report 16651538 (Version 1)
Quarter: 2019Q3

REPORT INFORMATION
  Report Type: Spontaneous
  Country: US (occurrence: US)
  Receive Date: 20190730
  Receipt Date: 20190730
  Transmission Date: 20191004
  Serious: Yes (Hospitalization)
  Sender: FDA-Public Use
  Company Number: None

PATIENT
  Sex: Female

DRUGS (19)
  1. ZOFRAN [Concomitant]
     Active Substance: ONDANSETRON HYDROCHLORIDE
  2. FIORICET [Concomitant]
     Active Substance: ACETAMINOPHEN\BUTALBITAL\CAFFEINE
  3. PEPCID [Concomitant]
     Active Substance: FAMOTIDINE
  4. PLAQUENIL [Concomitant]
     Active Substance: HYDROXYCHLOROQUINE SULFATE
  5. SENNA PLUS [Concomitant]
     Active Substance: DOCUSATE SODIUM\SENNOSIDES\SENNOSIDES A AND B
  6. XYZAL [Concomitant]
     Active Substance: LEVOCETIRIZINE DIHYDROCHLORIDE
  7. PRILOSEC [Concomitant]
     Active Substance: OMEPRAZOLE MAGNESIUM
  8. PROZAC [Concomitant]
     Active Substance: FLUOXETINE HYDROCHLORIDE
  9. TIZANIDINE. [Concomitant]
     Active Substance: TIZANIDINE
  10. VITAMIN D [Concomitant]
     Active Substance: VITAMIN D NOS
  11. BENLYSTA [Suspect]
     Active Substance: BELIMUMAB
     Dosage: ?          OTHER FREQUENCY:ONCE WEEKLY;?
     Route: 058
  12. MAXALT [Concomitant]
     Active Substance: RIZATRIPTAN BENZOATE
  13. PEPCID [Concomitant]
     Active Substance: FAMOTIDINE
  14. BENLYSTA [Concomitant]
     Active Substance: BELIMUMAB
  15. BUT/APAP/CAF [Concomitant]
  16. PREDNISONE. [Concomitant]
     Active Substance: PREDNISONE
  17. TOPAMAX [Concomitant]
     Active Substance: TOPIRAMATE
  18. ZANAFLEX [Concomitant]
     Active Substance: TIZANIDINE HYDROCHLORIDE
  19. LEVOTHYROXINE. [Concomitant]
     Active Substance: LEVOTHYROXINE

REACTIONS (2)
  - Therapy cessation [None]
  - Infection [None]

NARRATIVE: CASE EVENT DATE: 20190729
